FAERS Safety Report 24863870 (Version 5)
Quarter: 2025Q2

REPORT INFORMATION
  Report Type: Report from Study
  Country: US (occurrence: US)
  Receive Date: 20250120
  Receipt Date: 20250429
  Transmission Date: 20250716
  Serious: Yes (Other)
  Sender: NOVARTIS
  Company Number: US-002147023-NVSC2024US222414

PATIENT
  Age: 80 Year
  Sex: Female
  Weight: 138 kg

DRUGS (6)
  1. LEQVIO [Suspect]
     Active Substance: INCLISIRAN SODIUM
     Indication: Hyperlipidaemia
     Route: 058
     Dates: start: 20240901
  2. LEQVIO [Suspect]
     Active Substance: INCLISIRAN SODIUM
     Route: 058
     Dates: start: 20241001
  3. LEQVIO [Suspect]
     Active Substance: INCLISIRAN SODIUM
     Route: 058
     Dates: start: 20241014
  4. LEQVIO [Suspect]
     Active Substance: INCLISIRAN SODIUM
     Route: 058
     Dates: start: 20241016
  5. LEQVIO [Suspect]
     Active Substance: INCLISIRAN SODIUM
     Route: 065
  6. METOPROLOL [Concomitant]
     Active Substance: METOPROLOL
     Indication: Product used for unknown indication
     Route: 065

REACTIONS (11)
  - Thrombosis [Unknown]
  - Limb discomfort [Unknown]
  - Muscle discomfort [Unknown]
  - Musculoskeletal stiffness [Unknown]
  - Fatigue [Unknown]
  - Skin discolouration [Unknown]
  - Ill-defined disorder [Unknown]
  - Malaise [Unknown]
  - Injection site pain [Recovered/Resolved]
  - Dizziness [Unknown]
  - Product availability issue [Unknown]

NARRATIVE: CASE EVENT DATE: 20241001
